FAERS Safety Report 6782925-5 (Version None)
Quarter: 2010Q2

REPORT INFORMATION
  Report Type: 
  Country: None (occurrence: None)
  Receive Date: 20100622
  Receipt Date: 20100614
  Transmission Date: 20101027
  Serious: Yes (Hospitalization)
  Sender: FDA-Public Use
  Company Number: US-BIOGENIDEC-2010BI019544

PATIENT
  Age: 35 Year
  Sex: Female
  Weight: 136 kg

DRUGS (1)
  1. AVONEX [Suspect]
     Indication: MULTIPLE SCLEROSIS
     Route: 030
     Dates: start: 20081101

REACTIONS (12)
  - ASTHENIA [None]
  - BLINDNESS TRANSIENT [None]
  - CARDIAC FAILURE CONGESTIVE [None]
  - CHEST DISCOMFORT [None]
  - CHEST PAIN [None]
  - DYSPNOEA [None]
  - FATIGUE [None]
  - INFLUENZA LIKE ILLNESS [None]
  - JOINT SWELLING [None]
  - LOSS OF CONSCIOUSNESS [None]
  - UPPER RESPIRATORY TRACT INFECTION [None]
  - VISUAL IMPAIRMENT [None]
